FAERS Safety Report 11139733 (Version 1)
Quarter: 2015Q2

REPORT INFORMATION
  Report Type: Spontaneous
  Country: US (occurrence: None)
  Receive Date: 20150522
  Receipt Date: 20150522
  Transmission Date: 20150821
  Serious: Yes (Hospitalization, Other)
  Sender: FDA-Public Use
  Company Number: 2015COV00104

PATIENT
  Age: 62 Year
  Sex: Male

DRUGS (4)
  1. VENTOLIN HFA [Suspect]
     Active Substance: ALBUTEROL SULFATE
     Indication: PRODUCT USED FOR UNKNOWN INDICATION
  2. DIGOXIN (DIGOXIN) UNKNOWN [Suspect]
     Active Substance: DIGOXIN
     Indication: PRODUCT USED FOR UNKNOWN INDICATION
  3. BREO ELLIPTA [Suspect]
     Active Substance: FLUTICASONE FUROATE\VILANTEROL TRIFENATATE
     Indication: PRODUCT USED FOR UNKNOWN INDICATION
  4. COUMADIN [Suspect]
     Active Substance: WARFARIN SODIUM
     Indication: PRODUCT USED FOR UNKNOWN INDICATION

REACTIONS (21)
  - Cardiac failure acute [None]
  - Respiratory failure [None]
  - Cardiac failure congestive [None]
  - Aortic valve replacement [None]
  - Productive cough [None]
  - Cardiac failure chronic [None]
  - Treatment noncompliance [None]
  - Bronchitis [None]
  - Cardiomyopathy [None]
  - Atrial fibrillation [None]
  - Endocarditis [None]
  - Continuous positive airway pressure [None]
  - Hyperglycaemia [None]
  - Acute respiratory failure [None]
  - Tricuspid valve incompetence [None]
  - Dyspnoea [None]
  - Heart rate increased [None]
  - Chronic obstructive pulmonary disease [None]
  - Carotid artery disease [None]
  - Anaemia [None]
  - Stress [None]

NARRATIVE: CASE EVENT DATE: 201503
